FAERS Safety Report 4526574-8 (Version None)
Quarter: 2004Q4

REPORT INFORMATION
  Report Type: 
  Country: None (occurrence: None)
  Receive Date: 20041214
  Receipt Date: 20041206
  Transmission Date: 20050328
  Serious: Yes (Hospitalization, Other)
  Sender: FDA-Public Use
  Company Number: DE-JNJFOC-20041006613

PATIENT
  Sex: Female

DRUGS (1)
  1. ORTHO EVRA [Suspect]
     Indication: CONTRACEPTION
     Route: 062
     Dates: end: 20041013

REACTIONS (4)
  - BLOOD CHOLESTEROL INCREASED [None]
  - CEREBRAL VENOUS THROMBOSIS [None]
  - OPTIC NEURITIS [None]
  - THYROID FUNCTION TEST ABNORMAL [None]
